FAERS Safety Report 9780978 (Version 1)
Quarter: 2013Q4

REPORT INFORMATION
  Report Type: Spontaneous
  Country: US (occurrence: None)
  Receive Date: 20131220
  Receipt Date: 20131220
  Transmission Date: 20140711
  Serious: Yes (Death)
  Sender: FDA-Public Use
  Company Number: US-014008

PATIENT
  Age: 82 Year
  Sex: Male
  Weight: 75.75 kg

DRUGS (5)
  1. FIRMAGON/01764801 [Suspect]
     Indication: PRODUCT USED FOR UNKNOWN INDICATION
     Dosage: MAINTENANCE DOSE
  2. ARMOUR THYROID [Concomitant]
  3. AMBIEN [Concomitant]
  4. FENTANYL [Concomitant]
  5. PERCOCET [Concomitant]

REACTIONS (1)
  - Death [None]
